FAERS Safety Report 17245827 (Version 1)
Quarter: 2020Q1

REPORT INFORMATION
  Report Type: Spontaneous
  Country: US (occurrence: US)
  Receive Date: 20200108
  Receipt Date: 20200108
  Transmission Date: 20200409
  Serious: Yes (Other)
  Sender: FDA-Public Use
  Company Number: US-SA-2020SA004552

PATIENT
  Age: 36 Year
  Sex: Female
  Weight: 111.13 kg

DRUGS (7)
  1. PRENATAL VITAMINS [MINERALS NOS;VITAMINS NOS] [Concomitant]
     Active Substance: MINERALS\VITAMINS
     Dosage: 2 DF, QD
     Route: 048
     Dates: start: 20191206, end: 20191212
  2. ALBUTEROL [SALBUTAMOL] [Concomitant]
     Active Substance: ALBUTEROL
     Indication: ASTHMA
     Dosage: 2 DF/2 PUFF, 3.5DAY
     Route: 055
     Dates: start: 20190115, end: 20191130
  3. CAFFEINE. [Concomitant]
     Active Substance: CAFFEINE
     Dosage: 1 DF, Q3W
     Route: 048
     Dates: start: 20191207, end: 20191212
  4. VITAMIN D [VITAMIN D NOS] [Concomitant]
     Active Substance: VITAMIN D NOS
     Indication: VITAMIN D DEFICIENCY
     Dosage: 1 DF, QW
     Route: 048
     Dates: start: 20191111, end: 20191212
  5. DUPIXENT [Suspect]
     Active Substance: DUPILUMAB
     Indication: ASTHMA
     Dosage: 300 MG, QOW
     Route: 058
     Dates: start: 20191202, end: 20191212
  6. CAFFEINE. [Concomitant]
     Active Substance: CAFFEINE
     Dosage: 1 DF, QD
     Route: 048
     Dates: start: 20191111, end: 20191206
  7. UNITHROID [Concomitant]
     Active Substance: LEVOTHYROXINE SODIUM
     Indication: THYROID CANCER
     Dosage: 175 UG, QD
     Route: 048
     Dates: start: 20191111, end: 20191212

REACTIONS (2)
  - Exposure during pregnancy [Unknown]
  - Abortion spontaneous [Unknown]

NARRATIVE: CASE EVENT DATE: 20191202
